FAERS Safety Report 5585354-5 (Version None)
Quarter: 2008Q1

REPORT INFORMATION
  Report Type: 
  Country: None (occurrence: None)
  Receive Date: 20080104
  Receipt Date: 20080104
  Transmission Date: 20080703
  Serious: Yes (Life-Threatening)
  Sender: FDA-Public Use
  Company Number: None

PATIENT
  Sex: Female
  Weight: 83.6 kg

DRUGS (7)
  1. BACTRIM DS [Suspect]
     Indication: CELLULITIS
     Dosage: 800/160 MG  SMP/TMX  PO BID
     Route: 048
     Dates: start: 20071105, end: 20071106
  2. FERRUS SULFATE [Concomitant]
  3. MUPIROCIN [Concomitant]
  4. MIRTAZAPINE [Concomitant]
  5. PERCOCET [Concomitant]
  6. POTASSIUM CHLORIDE [Concomitant]
  7. QUETIAPINE [Concomitant]

REACTIONS (1)
  - TOXIC EPIDERMAL NECROLYSIS [None]
